FAERS Safety Report 17360881 (Version 5)
Quarter: 2020Q2

REPORT INFORMATION
  Report Type: Spontaneous
  Country: US (occurrence: US)
  Receive Date: 20200203
  Receipt Date: 20200601
  Transmission Date: 20200713
  Serious: No
  Sender: FDA-Public Use
  Company Number: US-SA-2020SA026618

PATIENT

DRUGS (1)
  1. DUPIXENT [Suspect]
     Active Substance: DUPILUMAB
     Indication: DERMATITIS ATOPIC
     Dosage: 300 MG, QOW
     Route: 058
     Dates: start: 20190829

REACTIONS (6)
  - Sneezing [Unknown]
  - Dry eye [Unknown]
  - Rhinitis allergic [Unknown]
  - Rhinorrhoea [Unknown]
  - Dermatitis atopic [Unknown]
  - Lacrimation increased [Unknown]
